FAERS Safety Report 21864133 (Version 2)
Quarter: 2023Q1

REPORT INFORMATION
  Report Type: Spontaneous
  Country: US (occurrence: US)
  Receive Date: 20230116
  Receipt Date: 20230320
  Transmission Date: 20230417
  Serious: Yes (Hospitalization, Other)
  Sender: FDA-Public Use
  Company Number: US-PFIZER INC-202300013327

PATIENT
  Age: 59 Year
  Sex: Female
  Weight: 99.34 kg

DRUGS (2)
  1. ENBREL [Suspect]
     Active Substance: ETANERCEPT
     Indication: Rheumatoid arthritis
     Dosage: UNK UNK, QWK
     Route: 065
     Dates: end: 2016
  2. MELOXICAM [Concomitant]
     Active Substance: MELOXICAM
     Indication: Rheumatoid arthritis
     Dosage: 7.5 MILLIGRAM, QD  (IN THE MORNING)

REACTIONS (3)
  - Dyspnoea [Unknown]
  - Hydrothorax [Unknown]
  - Influenza [Unknown]

NARRATIVE: CASE EVENT DATE: 20191201
